FAERS Safety Report 8636908 (Version 3)
Quarter: 2013Q1

REPORT INFORMATION
  Report Type: Spontaneous
  Country: US (occurrence: None)
  Receive Date: 20120530
  Receipt Date: 20121005
  Transmission Date: 20140127
  Serious: Yes (Other)
  Sender: FDA-Public Use
  Company Number: 2011030561

PATIENT
  Sex: Female
  Weight: 79.38 kg

DRUGS (30)
  1. HIZENTRA [Suspect]
     Indication: SELECTIVE IGA IMMUNODEFICIENCY
     Dates: start: 20111010
  2. HIZENTRA [Suspect]
     Indication: HYPOGLOBULINAEMIA
     Dates: start: 20111010
  3. HIZENTRA [Suspect]
     Indication: COMBINED IMMUNODEFICIENCY
     Dates: start: 20111010
  4. VIVELLE [Concomitant]
  5. LORATIDINE [Concomitant]
  6. TERAZOSIN HYDROCHLORIDE [Concomitant]
  7. VENLAFAXINE [Concomitant]
  8. GABAPENTIN (GABAPENTIN) [Concomitant]
  9. PROCHLORPERAZINE MALEATE [Concomitant]
  10. ZOFRAN [Concomitant]
  11. FOLIC ACID [Concomitant]
  12. FERROUS SULFATE [Concomitant]
  13. HYDROXYZINE [Concomitant]
  14. NEXIUM [Concomitant]
  15. VITAMIN B12 [Concomitant]
  16. LIDODERM [Concomitant]
  17. PEROCET (TYLOX /00446701/) [Concomitant]
  18. VITAMIN D [Concomitant]
  19. FLEXERIL (CYCLOBENZAPRINE HYDROCHLORIDE) [Concomitant]
  20. FIORICET [Concomitant]
  21. DIPHENHYDRAMINE HYDROCHLORIDE [Concomitant]
  22. LIDOCAINE [Concomitant]
  23. EPIPEN [Concomitant]
  24. ACETAMINOPHEN (PARACETAMOL) [Concomitant]
  25. CYMBALTA [Concomitant]
  26. LIPITOR [Concomitant]
  27. GLYCOPYRROLATE [Concomitant]
  28. HYDROCHLOROTHIAZIDE (HYDROCHLOROTHIAZIDE) [Concomitant]
  29. METHYLPHENIDATE HYDROCHLORIDE [Concomitant]
  30. DEXEDRIN (DEXAMFETAMINE SULFATE) [Concomitant]

REACTIONS (11)
  - Bone pain [None]
  - Infusion site haemorrhage [None]
  - Pain [None]
  - Sinusitis [None]
  - Headache [None]
  - Arthralgia [None]
  - Influenza like illness [None]
  - Infusion related reaction [None]
  - Drug ineffective [None]
  - Tenderness [None]
  - Diverticulitis [None]
